FAERS Safety Report 21226648 (Version 1)
Quarter: 2022Q3

REPORT INFORMATION
  Report Type: Spontaneous
  Country: CN (occurrence: CN)
  Receive Date: 20220818
  Receipt Date: 20220818
  Transmission Date: 20221026
  Serious: Yes (Life-Threatening, Other)
  Sender: FDA-Public Use
  Company Number: CN-PFIZER INC-202201049471

PATIENT
  Age: 57 Year
  Sex: Male

DRUGS (6)
  1. PACLITAXEL [Suspect]
     Active Substance: PACLITAXEL
     Indication: Metastases to bone
     Dosage: TWO CYCLES
  2. BEVACIZUMAB [Suspect]
     Active Substance: BEVACIZUMAB
     Indication: Lung neoplasm malignant
     Dosage: UNK
  3. BEVACIZUMAB [Suspect]
     Active Substance: BEVACIZUMAB
     Indication: Metastases to lymph nodes
  4. PEMETREXED [Concomitant]
     Active Substance: PEMETREXED
     Indication: Adenocarcinoma
     Dosage: TWO CYCLES
  5. CARBOPLATIN [Concomitant]
     Active Substance: CARBOPLATIN
     Indication: Adenocarcinoma
     Dosage: TWO CYCLES
  6. NEDAPLATIN [Concomitant]
     Active Substance: NEDAPLATIN
     Indication: Metastases to bone
     Dosage: TWO CYCLES

REACTIONS (1)
  - Cardiotoxicity [Unknown]
